FAERS Safety Report 8775234 (Version 2)
Quarter: 2012Q4

REPORT INFORMATION
  Report Type: 
  Country: JP (occurrence: JP)
  Receive Date: 20120910
  Receipt Date: 20121203
  Transmission Date: 20130627
  Serious: Yes (Hospitalization)
  Sender: FDA-Public Use
  Company Number: JP-AMGEN-JPNSP2012056224

PATIENT
  Age: 76 Year
  Sex: Female
  Weight: 38 kg

DRUGS (7)
  1. VECTIBIX [Suspect]
     Indication: LARGE INTESTINE CARCINOMA
     Dosage: 245.4 mg, q2wk
     Route: 041
     Dates: start: 20120224, end: 20120507
  2. VECTIBIX [Suspect]
     Dosage: 196.3 mg, q2wk
     Route: 041
     Dates: start: 20120604, end: 20120604
  3. VECTIBIX [Suspect]
     Dosage: 170.4 mg, q2wk
     Route: 041
     Dates: start: 20120625, end: 20120625
  4. VECTIBIX [Suspect]
     Dosage: 130 mg, q2wk
     Route: 041
     Dates: start: 20120726, end: 20120726
  5. ELPLAT [Suspect]
     Indication: LARGE INTESTINE CARCINOMA
     Dosage: 100 mg, q2wk
     Route: 041
     Dates: start: 20120224, end: 20120726
  6. 5-FU [Suspect]
     Indication: LARGE INTESTINE CARCINOMA
     Dosage: 3000 mg, q2wk
     Route: 041
     Dates: start: 20120224, end: 20120726
  7. ISOVORIN [Suspect]
     Indication: LARGE INTESTINE CARCINOMA
     Dosage: 250 mg, q2wk
     Route: 041
     Dates: start: 20120224, end: 20120726

REACTIONS (3)
  - Interstitial lung disease [Recovered/Resolved]
  - Skin disorder [Unknown]
  - Stomatitis [Unknown]
